FAERS Safety Report 7944842-4 (Version None)
Quarter: 2011Q4

REPORT INFORMATION
  Report Type: 
  Country: None (occurrence: None)
  Receive Date: 20111129
  Receipt Date: 20111117
  Transmission Date: 20120403
  Serious: Yes (Other)
  Sender: FDA-Public Use
  Company Number: DE-JNJFOC-20111111131

PATIENT
  Age: 49 Year
  Sex: Male

DRUGS (6)
  1. CITALOPRAM [Interacting]
     Indication: PRODUCT USED FOR UNKNOWN INDICATION
     Route: 065
  2. POLYETHYLENE GLYCOL [Concomitant]
     Route: 065
  3. HALOPERIDOL [Concomitant]
     Route: 065
  4. LORAZEPAM [Concomitant]
     Route: 065
  5. TRAMADOL HYDROCHLORIDE [Suspect]
     Indication: PRODUCT USED FOR UNKNOWN INDICATION
     Route: 048
  6. METOCLOPRAMIDE [Concomitant]
     Route: 065

REACTIONS (5)
  - SEROTONIN SYNDROME [None]
  - DRUG INTERACTION [None]
  - NAUSEA [None]
  - RESTLESSNESS [None]
  - TREMOR [None]
